FAERS Safety Report 10377915 (Version 1)
Quarter: 2014Q3

REPORT INFORMATION
  Report Type: Spontaneous
  Country: CN (occurrence: CN)
  Receive Date: 20140812
  Receipt Date: 20140812
  Transmission Date: 20150326
  Serious: Yes (Other)
  Sender: FDA-Public Use
  Company Number: CN-ASTRAZENECA-2014SE59008

PATIENT
  Age: 18323 Day
  Sex: Female
  Weight: 55 kg

DRUGS (3)
  1. ESOMEPRAZOLE MAGNESIUM. [Suspect]
     Active Substance: ESOMEPRAZOLE MAGNESIUM
     Indication: HELICOBACTER INFECTION
     Route: 048
     Dates: start: 20140217, end: 20140218
  2. HYDROTALCITE [Suspect]
     Active Substance: HYDROTALCITE
     Indication: GASTRITIS PROPHYLAXIS
     Route: 048
     Dates: start: 20140217, end: 20140218
  3. BISMUTH POTASSIUM CITRATE-CLARITHROMYCIN-TRINIDAZOLE [Suspect]
     Active Substance: BISMUTH SUBCITRATE POTASSIUM\CLARITHROMYCIN\TINIDAZOLE
     Indication: HELICOBACTER INFECTION
     Route: 048
     Dates: start: 20140217, end: 20140218

REACTIONS (1)
  - Anaphylactoid reaction [Recovering/Resolving]

NARRATIVE: CASE EVENT DATE: 20140217
